FAERS Safety Report 24556412 (Version 1)
Quarter: 2024Q4

REPORT INFORMATION
  Report Type: Spontaneous
  Country: ES (occurrence: ES)
  Receive Date: 20241028
  Receipt Date: 20241028
  Transmission Date: 20250115
  Serious: Yes (Other)
  Sender: FRESENIUS KABI
  Company Number: None

PATIENT
  Age: 49 Year
  Sex: Female

DRUGS (1)
  1. TYENNE [Suspect]
     Active Substance: TOCILIZUMAB-AAZG
     Indication: Rheumatoid arthritis
     Dosage: 162 MG ONCE A WEEK
     Route: 058
     Dates: start: 20240820

REACTIONS (1)
  - Skin induration [Recovering/Resolving]

NARRATIVE: CASE EVENT DATE: 20241009
